FAERS Safety Report 23357091 (Version 1)
Quarter: 2024Q1

REPORT INFORMATION
  Report Type: Spontaneous
  Country: ES (occurrence: ES)
  Receive Date: 20240102
  Receipt Date: 20240102
  Transmission Date: 20240409
  Serious: Yes (Other)
  Sender: FDA-Public Use
  Company Number: ES-GTI-000047

PATIENT
  Age: 8 Year
  Sex: Female

DRUGS (2)
  1. PREDNISONE [Suspect]
     Active Substance: PREDNISONE
     Indication: Nephrotic syndrome
     Route: 048
  2. MYCOPHENOLATE MOFETIL [Suspect]
     Active Substance: MYCOPHENOLATE MOFETIL
     Indication: Nephrotic syndrome
     Route: 065

REACTIONS (5)
  - Nephrotic syndrome [Unknown]
  - Gene mutation [Unknown]
  - Drug ineffective [Unknown]
  - Therapy non-responder [Unknown]
  - Focal segmental glomerulosclerosis [Unknown]
